FAERS Safety Report 5370183-8 (Version None)
Quarter: 2007Q2

REPORT INFORMATION
  Report Type: 
  Country: None (occurrence: None)
  Receive Date: 20070626
  Receipt Date: 20070619
  Transmission Date: 20071010
  Serious: Yes (Hospitalization, Other)
  Sender: FDA-Public Use
  Company Number: CN-NOVOPROD-264176

PATIENT
  Age: 86 Year
  Sex: Male
  Weight: 49 kg

DRUGS (2)
  1. NOVOLOG MIX 70/30 [Suspect]
     Indication: INSULIN-REQUIRING TYPE II DIABETES MELLITUS
     Dosage: 16+16 IU, QD
     Route: 058
     Dates: start: 20070427, end: 20070429
  2. SALCATONIN [Concomitant]
     Dosage: 50 UG, QD
     Route: 058
     Dates: start: 20070425

REACTIONS (7)
  - ALTERED STATE OF CONSCIOUSNESS [None]
  - DIARRHOEA [None]
  - EXTRASYSTOLES [None]
  - HYPERHIDROSIS [None]
  - HYPOGLYCAEMIA [None]
  - HYPOKALAEMIA [None]
  - MYOCARDIAL ISCHAEMIA [None]
